FAERS Safety Report 15332972 (Version 1)
Quarter: 2018Q3

REPORT INFORMATION
  Report Type: Spontaneous
  Country: JP (occurrence: JP)
  Receive Date: 20180830
  Receipt Date: 20180830
  Transmission Date: 20181010
  Serious: Yes (Hospitalization, Other)
  Sender: FDA-Public Use
  Company Number: JP-ASTELLAS-2018US037797

PATIENT
  Age: 78 Year
  Sex: Male
  Weight: 54 kg

DRUGS (8)
  1. LOXOPROFEN [Suspect]
     Active Substance: LOXOPROFEN
     Indication: COMPRESSION FRACTURE
     Route: 048
     Dates: start: 20170822, end: 20170830
  2. MINOCYCLINE HYDROCHLORIDE. [Concomitant]
     Active Substance: MINOCYCLINE HYDROCHLORIDE
     Dosage: UNK, UNKNOWN FREQ.
     Route: 048
     Dates: start: 20170919
  3. ERLOTINIB [Suspect]
     Active Substance: ERLOTINIB
     Route: 048
     Dates: start: 20170919
  4. AVASTIN [Suspect]
     Active Substance: BEVACIZUMAB
     Indication: LUNG NEOPLASM MALIGNANT
     Route: 041
     Dates: start: 20170816, end: 20170816
  5. BETAMETHASONE. [Suspect]
     Active Substance: BETAMETHASONE
     Indication: METASTASES TO CENTRAL NERVOUS SYSTEM
     Dosage: DOSE INTERVAL UNCERTAINTY
     Route: 048
     Dates: start: 20170516, end: 20170530
  6. MINOCYCLINE HYDROCHLORIDE. [Concomitant]
     Active Substance: MINOCYCLINE HYDROCHLORIDE
     Indication: PRODUCT USED FOR UNKNOWN INDICATION
     Dosage: UNK, UNKNOWN FREQ.
     Route: 048
     Dates: start: 20170516, end: 2017
  7. BETAMETHASONE. [Suspect]
     Active Substance: BETAMETHASONE
     Dosage: 0.5 MG, EVERY 12 HOURS
     Route: 048
     Dates: start: 20170718, end: 20170830
  8. ERLOTINIB [Suspect]
     Active Substance: ERLOTINIB
     Indication: LUNG NEOPLASM MALIGNANT
     Route: 048
     Dates: start: 20170517

REACTIONS (4)
  - Gastrointestinal haemorrhage [Recovered/Resolved]
  - Compression fracture [Unknown]
  - Duodenal ulcer [Unknown]
  - Fall [Unknown]

NARRATIVE: CASE EVENT DATE: 20170817
